FAERS Safety Report 20475240 (Version 4)
Quarter: 2022Q2

REPORT INFORMATION
  Report Type: Report from Study
  Country: US (occurrence: US)
  Receive Date: 20220215
  Receipt Date: 20220429
  Transmission Date: 20220720
  Serious: No
  Sender: FDA-Public Use
  Company Number: US-NOVARTISTESTPH-NVSC2022US034342

PATIENT
  Sex: Female

DRUGS (1)
  1. ENTRESTO [Suspect]
     Active Substance: SACUBITRIL\VALSARTAN
     Indication: Product used for unknown indication
     Dosage: 50 MG, BID  (SACUBITRIL: 24 MG, VALSARTAN 26 MG)
     Route: 048
     Dates: start: 20220121

REACTIONS (3)
  - Blood pressure increased [Unknown]
  - Fear [Unknown]
  - Hypotension [Unknown]
